FAERS Safety Report 6318415-3 (Version None)
Quarter: 2009Q3

REPORT INFORMATION
  Report Type: 
  Country: None (occurrence: None)
  Receive Date: 20090821
  Receipt Date: 20090803
  Transmission Date: 20100115
  Serious: Yes (Death)
  Sender: FDA-Public Use
  Company Number: NZ-PFIZER INC-2009253346

PATIENT

DRUGS (7)
  1. TRANEXAMIC ACID [Suspect]
  2. SALBUTAMOL SULFATE [Suspect]
  3. THALIDOMIDE [Suspect]
  4. PARACETAMOL [Suspect]
  5. OMEPRAZOLE [Suspect]
  6. METFORMIN [Suspect]
  7. IPRATROPIUM [Suspect]

REACTIONS (1)
  - DEATH [None]
